FAERS Safety Report 22340929 (Version 2)
Quarter: 2023Q2

REPORT INFORMATION
  Report Type: Report from Study
  Country: IT (occurrence: IT)
  Receive Date: 20230518
  Receipt Date: 20230523
  Transmission Date: 20230722
  Serious: Yes (Other)
  Sender: FDA-Public Use
  Company Number: None

PATIENT
  Age: 58 Year
  Sex: Female
  Weight: 94 kg

DRUGS (15)
  1. ENCORAFENIB [Suspect]
     Active Substance: ENCORAFENIB
     Indication: Colon cancer
     Dosage: 300 MG, UNK
     Route: 048
     Dates: start: 20220722
  2. ENCORAFENIB [Suspect]
     Active Substance: ENCORAFENIB
     Dosage: 300 MG, UNK
     Route: 048
     Dates: start: 20220805
  3. ENCORAFENIB [Suspect]
     Active Substance: ENCORAFENIB
     Dosage: 300 MG, UNK
     Route: 048
     Dates: start: 20220812
  4. ENCORAFENIB [Suspect]
     Active Substance: ENCORAFENIB
     Dosage: 300 MG, UNK
     Route: 048
     Dates: start: 20220909
  5. ENCORAFENIB [Suspect]
     Active Substance: ENCORAFENIB
     Dosage: 300 MG, UNK
     Route: 048
     Dates: start: 20220916
  6. CETUXIMAB [Suspect]
     Active Substance: CETUXIMAB
     Indication: Colon cancer
     Dosage: 708 MG
     Route: 042
     Dates: start: 20220722, end: 20220722
  7. CETUXIMAB [Suspect]
     Active Substance: CETUXIMAB
     Dosage: 442 MG, UNK
     Route: 042
     Dates: start: 20220805, end: 20220805
  8. CETUXIMAB [Suspect]
     Active Substance: CETUXIMAB
     Dosage: 442 MG, UNK
     Route: 042
     Dates: start: 20220812, end: 20220812
  9. CETUXIMAB [Suspect]
     Active Substance: CETUXIMAB
     Dosage: 442 MG, UNK
     Route: 042
     Dates: start: 20220909, end: 20220909
  10. CETUXIMAB [Suspect]
     Active Substance: CETUXIMAB
     Dosage: 442 MG, UNK
     Route: 042
     Dates: start: 20220916, end: 20220916
  11. EZETIMIBE\ROSUVASTATIN ZINC [Concomitant]
     Active Substance: EZETIMIBE\ROSUVASTATIN ZINC
     Dosage: UNK
     Route: 065
  12. OLMESARTAN MEDOXOMIL [Concomitant]
     Active Substance: OLMESARTAN MEDOXOMIL
     Dosage: UNK
     Route: 065
  13. CALCIO CARBONATO [Concomitant]
     Dosage: UNK
     Route: 065
  14. ACETAMINOPHEN\OXYCODONE HYDROCHLORIDE [Concomitant]
     Active Substance: ACETAMINOPHEN\OXYCODONE HYDROCHLORIDE
     Dosage: UNK
     Route: 065
  15. XGEVA [Concomitant]
     Active Substance: DENOSUMAB
     Dosage: UNK
     Route: 065

REACTIONS (10)
  - Melaena [Recovering/Resolving]
  - Paraesthesia [Recovering/Resolving]
  - Constipation [Recovering/Resolving]
  - Asthenia [Recovering/Resolving]
  - Blood sodium decreased [Recovering/Resolving]
  - Hypertransaminasaemia [Recovering/Resolving]
  - Rash [Recovering/Resolving]
  - Pain in extremity [Recovering/Resolving]
  - Vomiting [Recovered/Resolved]
  - Nausea [Recovering/Resolving]

NARRATIVE: CASE EVENT DATE: 20220723
